FAERS Safety Report 10103384 (Version 2)
Quarter: 2014Q2

REPORT INFORMATION
  Report Type: Spontaneous
  Country: US (occurrence: US)
  Receive Date: 20140424
  Receipt Date: 20140424
  Transmission Date: 20141212
  Serious: No
  Sender: FDA-Public Use
  Company Number: US-BRISTOL-MYERS SQUIBB COMPANY-20378600

PATIENT
  Age: 77 Year
  Sex: Female
  Weight: 67.57 kg

DRUGS (3)
  1. ELIQUIS [Suspect]
     Indication: ATRIAL FIBRILLATION
     Dates: start: 20140227
  2. QUINAPRIL [Concomitant]
  3. METOPROLOL [Concomitant]

REACTIONS (1)
  - Pain in extremity [Unknown]
